APPROVED DRUG PRODUCT: DASATINIB
Active Ingredient: DASATINIB
Strength: 70MG
Dosage Form/Route: TABLET;ORAL
Application: A216547 | Product #003 | TE Code: AB
Applicant: EUGIA PHARMA SPECIALITIES LTD
Approved: Apr 22, 2025 | RLD: No | RS: No | Type: RX